FAERS Safety Report 7001153-1 (Version None)
Quarter: 2010Q3

REPORT INFORMATION
  Report Type: 
  Country: None (occurrence: None)
  Receive Date: 20100920
  Receipt Date: 20100915
  Transmission Date: 20110219
  Serious: Yes (Life-Threatening, Hospitalization, Other)
  Sender: FDA-Public Use
  Company Number: PHHY2010JP56543

PATIENT
  Sex: Female
  Weight: 35 kg

DRUGS (36)
  1. NEORAL [Suspect]
     Indication: LUNG TRANSPLANT
     Dosage: 80 MG, BID
     Dates: start: 20081030, end: 20081201
  2. NEORAL [Suspect]
     Dosage: 80 MG
     Dates: start: 20081202, end: 20090105
  3. NEORAL [Suspect]
     Dosage: 50 MG
     Dates: start: 20090106, end: 20090324
  4. NEORAL [Suspect]
     Dosage: UNK
     Dates: start: 20090325
  5. NEORAL [Suspect]
     Indication: LUNG TRANSPLANT
     Dosage: UNK
     Route: 048
     Dates: start: 20081013, end: 20081029
  6. SANDIMMUNE [Suspect]
     Indication: LUNG TRANSPLANT
     Dosage: UNK
     Route: 041
     Dates: start: 20081001, end: 20081012
  7. CELLCEPT [Suspect]
     Indication: LUNG TRANSPLANT
     Dosage: 250 MG, UNK
     Route: 048
     Dates: start: 20081001, end: 20081001
  8. CELLCEPT [Suspect]
     Dosage: 500 MG, UNK
     Route: 048
     Dates: start: 20081002, end: 20081009
  9. CELLCEPT [Suspect]
     Dosage: 750 MG, UNK
     Route: 048
     Dates: start: 20081010, end: 20081118
  10. CELLCEPT [Suspect]
     Dosage: 500 MG, UNK
     Route: 048
     Dates: start: 20081119, end: 20090323
  11. CELLCEPT [Suspect]
     Dosage: 750 MG, UNK
     Route: 048
     Dates: start: 20090324
  12. METILDIGOXIN [Concomitant]
     Dosage: 0.1 MG/DAY
  13. ETIZOLAM [Concomitant]
     Dosage: 1 MG/DAY
  14. PREDNISOLONE [Concomitant]
     Dosage: 15 MG, UNK
     Route: 048
     Dates: start: 20081010
  15. PREDNISOLONE [Concomitant]
     Dosage: 12.5 MG, UNK
     Route: 048
     Dates: start: 20081010
  16. PREDNISOLONE [Concomitant]
     Dosage: 10 MG, UNK
     Route: 048
     Dates: start: 20081010
  17. PREDNISOLONE [Concomitant]
     Dosage: 7.5 MG, UNK
     Route: 048
     Dates: start: 20081010
  18. PREDNISOLONE [Concomitant]
     Dosage: 6.75 MG, UNK
     Route: 048
     Dates: start: 20081010
  19. PREDNISOLONE [Concomitant]
     Dosage: 5 MG, UNK
     Route: 048
     Dates: start: 20081010
  20. PREDNISOLONE [Concomitant]
     Dosage: 3.75 MG, UNK
     Route: 048
     Dates: start: 20081010
  21. SULFAMETHOXAZOLE AND TRIMETHOPRIM [Concomitant]
     Dosage: 1 G/DAY
  22. AMPHOTERICIN B [Concomitant]
     Dosage: 1.2 G/DAY
  23. ACYCLOVIR [Concomitant]
     Dosage: 200 MG/DAY
  24. LANSOPRAZOLE [Concomitant]
     Dosage: 60 MG/DAY
  25. ATROPINE SULFATE [Concomitant]
     Dosage: 0.3 MG
  26. PETHIDINE HYDROCHLORIDE [Concomitant]
     Dosage: 30 MG
     Route: 030
  27. HYDROCORTISONE SODIUM SUCCINATE [Concomitant]
     Dosage: 100 MG
     Route: 042
  28. MIDAZOLAM HCL [Concomitant]
     Dosage: 2 MG
  29. PROPOFOL [Concomitant]
     Dosage: 40 MG
  30. REMIFENTANIL [Concomitant]
     Dosage: 0.25 UG/KG/MIN
  31. SEVOFLURANE [Concomitant]
     Dosage: 03 PERCENT
  32. ROCURONIUM BROMIDE [Concomitant]
     Dosage: 20 MG
  33. CEFAZOLIN SODIUM [Concomitant]
     Dosage: 600 MG
     Route: 042
  34. VALGANCICLOVIR HCL [Concomitant]
     Dosage: 450 MG, UNK
     Route: 048
     Dates: start: 20090127, end: 20090224
  35. METHYLPREDNISOLONE [Concomitant]
     Dosage: 100 MG, UNK
     Route: 042
     Dates: start: 20081001, end: 20081009
  36. METHYLPREDNISOLONE [Concomitant]
     Dosage: 50 MG, UNK
     Route: 042
     Dates: start: 20081001, end: 20081009

REACTIONS (22)
  - BLOOD CREATININE INCREASED [None]
  - BLOOD PRESSURE DECREASED [None]
  - CATHETER REMOVAL [None]
  - DEHYDRATION [None]
  - DIARRHOEA [None]
  - DYSPNOEA [None]
  - ENTEROCOLITIS [None]
  - GASTROENTERITIS [None]
  - GASTROINTESTINAL TUBE INSERTION [None]
  - GLOSSECTOMY [None]
  - HYPOGLYCAEMIA [None]
  - HYPOPHAGIA [None]
  - MALNUTRITION [None]
  - MECHANICAL VENTILATION [None]
  - METABOLIC ACIDOSIS [None]
  - NAUSEA [None]
  - RESPIRATORY FAILURE [None]
  - TACHYCARDIA [None]
  - TONGUE NEOPLASM MALIGNANT STAGE UNSPECIFIED [None]
  - URINE KETONE BODY PRESENT [None]
  - VITAL CAPACITY DECREASED [None]
  - WHITE BLOOD CELL COUNT INCREASED [None]
